FAERS Safety Report 17836459 (Version 1)
Quarter: 2020Q2

REPORT INFORMATION
  Report Type: Spontaneous
  Country: GB (occurrence: GB)
  Receive Date: 20200528
  Receipt Date: 20200528
  Transmission Date: 20200714
  Serious: Yes (Other)
  Sender: FDA-Public Use
  Company Number: GB-ALEXION-A202007264

PATIENT
  Age: 15 Year
  Sex: Female

DRUGS (2)
  1. SOLIRIS [Suspect]
     Active Substance: ECULIZUMAB
     Dosage: UNK
     Route: 065
  2. SOLIRIS [Suspect]
     Active Substance: ECULIZUMAB
     Indication: ATYPICAL HAEMOLYTIC URAEMIC SYNDROME
     Dosage: UNK
     Route: 065

REACTIONS (7)
  - Thrombotic microangiopathy [Unknown]
  - Glomerular filtration rate increased [Unknown]
  - Haematuria [Unknown]
  - Hypertension [Unknown]
  - Proteinuria [Unknown]
  - Urine albumin/creatinine ratio increased [Unknown]
  - Chronic kidney disease [Unknown]
